FAERS Safety Report 14776561 (Version 2)
Quarter: 2018Q2

REPORT INFORMATION
  Report Type: Report from Study
  Country: IL (occurrence: IL)
  Receive Date: 20180418
  Receipt Date: 20180507
  Transmission Date: 20180711
  Serious: Yes (Hospitalization)
  Sender: FDA-Public Use
  Company Number: PHHO2018IL005002

PATIENT
  Age: 75 Year
  Sex: Male
  Weight: 86.4 kg

DRUGS (1)
  1. LEE011 [Suspect]
     Active Substance: RIBOCICLIB
     Indication: DEDIFFERENTIATED LIPOSARCOMA
     Dosage: 600 MG, QD
     Route: 048
     Dates: start: 20170625, end: 20180402

REACTIONS (1)
  - Dizziness [Not Recovered/Not Resolved]

NARRATIVE: CASE EVENT DATE: 20180410
